FAERS Safety Report 5813981-6 (Version None)
Quarter: 2008Q3

REPORT INFORMATION
  Report Type: 
  Country: None (occurrence: None)
  Receive Date: 20080717
  Receipt Date: 20080710
  Transmission Date: 20090109
  Serious: Yes (Other)
  Sender: FDA-Public Use
  Company Number: RU-PFIZER INC-2008057061

PATIENT
  Age: 72 Year
  Sex: Female

DRUGS (3)
  1. QUINAPRIL HCL [Suspect]
     Indication: HYPERTENSION
     Dosage: DAILY DOSE:20MG-FREQ:EVERY DAY
     Route: 048
     Dates: start: 20060126, end: 20071113
  2. QUINAPRIL HCL [Suspect]
     Indication: MYOCARDIAL ISCHAEMIA
  3. QUINAPRIL HCL [Suspect]
     Indication: ARTERIOSCLEROSIS CORONARY ARTERY

REACTIONS (1)
  - MUSCLE SPASMS [None]
